FAERS Safety Report 19979634 (Version 3)
Quarter: 2021Q4

REPORT INFORMATION
  Report Type: Spontaneous
  Country: CN (occurrence: CN)
  Receive Date: 20211020
  Receipt Date: 20211103
  Transmission Date: 20220303
  Serious: Yes (Hospitalization, Other)
  Sender: FDA-Public Use
  Company Number: CN-ABBVIE-21K-035-4119425-00

PATIENT
  Age: 41 Year
  Sex: Male

DRUGS (3)
  1. VALPROATE SODIUM [Suspect]
     Active Substance: VALPROATE SODIUM
     Indication: Epilepsy
     Route: 048
  2. PHENYTOIN SODIUM [Suspect]
     Active Substance: PHENYTOIN SODIUM
     Indication: Epilepsy
     Route: 048
  3. ENOXAPARIN SODIUM [Suspect]
     Active Substance: ENOXAPARIN SODIUM
     Indication: Anticoagulant therapy
     Route: 058

REACTIONS (14)
  - Cerebral venous sinus thrombosis [Recovering/Resolving]
  - Intracranial pressure increased [Recovered/Resolved]
  - Thrombosis [Recovering/Resolving]
  - Gaze palsy [Recovered/Resolved]
  - Spinal osteoarthritis [Not Recovered/Not Resolved]
  - Venous occlusion [Recovered/Resolved]
  - Antithrombin III deficiency [Recovered/Resolved]
  - Pyruvate carboxylase deficiency [Recovered/Resolved]
  - Dyskinesia [Not Recovered/Not Resolved]
  - Cerebral venous sinus thrombosis [Recovered/Resolved]
  - Sinusitis [Not Recovered/Not Resolved]
  - Vomiting [Recovered/Resolved]
  - Sinusitis [Recovering/Resolving]
  - Drug ineffective [Unknown]
